FAERS Safety Report 6498763-7 (Version None)
Quarter: 2009Q4

REPORT INFORMATION
  Report Type: 
  Country: None (occurrence: None)
  Receive Date: 20091215
  Receipt Date: 20091207
  Transmission Date: 20100525
  Serious: Yes (Other)
  Sender: FDA-Public Use
  Company Number: PHHY2009JP44262

PATIENT
  Age: 76 Year
  Sex: Female

DRUGS (8)
  1. NEORAL [Interacting]
     Indication: NEPHROTIC SYNDROME
     Dosage: 100 MG DAILY
     Route: 048
     Dates: start: 20090930, end: 20091008
  2. NEORAL [Interacting]
     Dosage: 75 MG DAILY
     Route: 048
     Dates: start: 20091008, end: 20091026
  3. NEORAL [Interacting]
     Dosage: 50 MG DAILY
     Route: 048
     Dates: start: 20091026
  4. FLUVASTATIN [Suspect]
     Dosage: 20 MG DAILY
     Route: 048
     Dates: start: 20090916, end: 20091009
  5. ALLOPURINOL [Interacting]
     Dosage: 75 MG DAILY
     Route: 048
  6. ALLOPURINOL [Interacting]
     Dosage: 50 MG DAILY
     Route: 048
  7. PREDNISOLONE [Concomitant]
     Dosage: HALF PULSE THERAPY
  8. PREDNISOLONE [Concomitant]
     Dosage: 20 MG DAILY

REACTIONS (10)
  - BLOOD CREATINE PHOSPHOKINASE INCREASED [None]
  - DRUG INTERACTION [None]
  - IMMUNOSUPPRESSANT DRUG LEVEL INCREASED [None]
  - LIVER FUNCTION TEST ABNORMAL [None]
  - MALAISE [None]
  - MUSCULAR WEAKNESS [None]
  - NAUSEA [None]
  - TREMOR [None]
  - VISION BLURRED [None]
  - VOMITING [None]
